FAERS Safety Report 10298761 (Version 2)
Quarter: 2015Q3

REPORT INFORMATION
  Report Type: Spontaneous
  Country: US (occurrence: US)
  Receive Date: 20140711
  Receipt Date: 20150814
  Transmission Date: 20151125
  Serious: No
  Sender: FDA-Public Use
  Company Number: US-GILEAD-2013-0079842

PATIENT
  Age: 69 Year
  Sex: Female

DRUGS (3)
  1. LETAIRIS [Suspect]
     Active Substance: AMBRISENTAN
     Indication: PULMONARY ARTERIAL HYPERTENSION
     Dosage: 10 MG, QD
     Route: 048
     Dates: start: 20130301
  2. LETAIRIS [Suspect]
     Active Substance: AMBRISENTAN
     Dosage: 5 MG, QD
     Route: 048
     Dates: start: 201307
  3. LASIX [Concomitant]
     Active Substance: FUROSEMIDE

REACTIONS (4)
  - Nasal congestion [Recovered/Resolved]
  - Swelling [Recovered/Resolved]
  - Hot flush [Recovered/Resolved]
  - Fluid retention [Recovered/Resolved]
